FAERS Safety Report 5075489-8 (Version None)
Quarter: 2006Q3

REPORT INFORMATION
  Report Type: 
  Country: None (occurrence: None)
  Receive Date: 20060809
  Receipt Date: 20060802
  Transmission Date: 20061208
  Serious: Yes (Death)
  Sender: FDA-Public Use
  Company Number: PHEH2006US09849

PATIENT
  Age: 19 Day
  Sex: Male

DRUGS (2)
  1. ALDOMET [Suspect]
     Dosage: UNK, UNK
     Route: 064
  2. LOTENSIN HCT [Suspect]
     Route: 064

REACTIONS (12)
  - CAESAREAN SECTION [None]
  - CONGENITAL TRICUSPID VALVE ATRESIA [None]
  - DRUG EXPOSURE DURING PREGNANCY [None]
  - HEART DISEASE CONGENITAL [None]
  - PREGNANCY [None]
  - PREMATURE BABY [None]
  - RENAL DYSPLASIA [None]
  - SOLITARY KIDNEY [None]
  - TAKAYASU'S ARTERITIS [None]
  - TRANSPOSITION OF THE GREAT VESSELS [None]
  - UNIVENTRICULAR HEART [None]
  - VENTRICULAR SEPTAL DEFECT [None]
